FAERS Safety Report 23922461 (Version 1)
Quarter: 2024Q2

REPORT INFORMATION
  Report Type: Other
  Country: AU (occurrence: AU)
  Receive Date: 20240531
  Receipt Date: 20240531
  Transmission Date: 20240716
  Serious: Yes (Hospitalization)
  Sender: FDA-Public Use
  Company Number: AU-LUPIN PHARMACEUTICALS INC.-2023-07708

PATIENT

DRUGS (1)
  1. TRAMADOL HYDROCHLORIDE [Suspect]
     Active Substance: TRAMADOL HYDROCHLORIDE
     Indication: Pain
     Dosage: 50 MILLIGRAM, QD (1 DAY)
     Route: 048
     Dates: start: 20230603, end: 20230603

REACTIONS (2)
  - Rash pruritic [Recovered/Resolved]
  - Swelling of eyelid [Recovered/Resolved]

NARRATIVE: CASE EVENT DATE: 20230603
